FAERS Safety Report 5625497-0 (Version None)
Quarter: 2008Q1

REPORT INFORMATION
  Report Type: 
  Country: None (occurrence: None)
  Receive Date: 20080208
  Receipt Date: 20071204
  Transmission Date: 20080703
  Serious: Yes (Other)
  Sender: FDA-Public Use
  Company Number: WAES 0712PRT00001

PATIENT
  Sex: Male

DRUGS (2)
  1. TAB RALTEGRAVIR POTASSIUM [Suspect]
     Indication: HIV INFECTION
  2. DARUNAVIR [Suspect]
     Indication: HIV INFECTION

REACTIONS (1)
  - THROMBOCYTOPENIA [None]
